FAERS Safety Report 4748189-9 (Version None)
Quarter: 2005Q3

REPORT INFORMATION
  Report Type: 
  Country: None (occurrence: None)
  Receive Date: 20050818
  Receipt Date: 20050810
  Transmission Date: 20060218
  Serious: Yes (Other)
  Sender: FDA-Public Use
  Company Number: SK-JNJFOC-20050800739

PATIENT
  Sex: Male

DRUGS (4)
  1. ZALDIAR [Suspect]
     Indication: HEADACHE
     Route: 048
  2. ZALDIAR [Suspect]
     Route: 048
  3. CONCOR [Concomitant]
     Route: 065
  4. ANTIARRHYTHMICS [Concomitant]
     Route: 065

REACTIONS (2)
  - CHROMATURIA [None]
  - DYSURIA [None]
